FAERS Safety Report 19920041 (Version 1)
Quarter: 2021Q4

REPORT INFORMATION
  Report Type: Spontaneous
  Country: DE (occurrence: DE)
  Receive Date: 20211006
  Receipt Date: 20211006
  Transmission Date: 20220304
  Serious: Yes (Hospitalization, Other)
  Sender: FDA-Public Use
  Company Number: DE-SUNPHARMA-2021R1-313326AA

PATIENT
  Age: 16 Year
  Sex: Female

DRUGS (8)
  1. LISINOPRIL [Suspect]
     Active Substance: LISINOPRIL
     Indication: Immunosuppression
     Dosage: 5 MILLIGRAM
     Route: 065
  2. EVEROLIMUS [Suspect]
     Active Substance: EVEROLIMUS
     Indication: Immunosuppression
     Dosage: 10.75 MILLIGRAM, DAILY
     Route: 065
  3. IRBESARTAN [Concomitant]
     Active Substance: IRBESARTAN
     Indication: Product used for unknown indication
     Dosage: UNK
     Route: 065
  4. SODIUM BICARBONATE [Concomitant]
     Active Substance: SODIUM BICARBONATE
     Indication: Immunosuppression
     Dosage: 1 GRAM
     Route: 065
  5. CHOLECALCIFEROL [Concomitant]
     Active Substance: CHOLECALCIFEROL
     Indication: Immunosuppression
     Dosage: 1000 IE
     Route: 065
  6. POTASSIUM IODIDE [Concomitant]
     Active Substance: POTASSIUM IODIDE
     Indication: Immunosuppression
     Dosage: 200 MICROGRAM
     Route: 065
  7. SIMVASTATIN [Concomitant]
     Active Substance: SIMVASTATIN
     Indication: Immunosuppression
     Dosage: 10 MILLIGRAM
     Route: 065
  8. iron ii glycine sulphate complex [Concomitant]
     Indication: Immunosuppression
     Dosage: 50 MILLIGRAM EVERY OTHER DAY
     Route: 065

REACTIONS (1)
  - Intestinal angioedema [Recovered/Resolved]
